FAERS Safety Report 5723098-7 (Version None)
Quarter: 2008Q2

REPORT INFORMATION
  Report Type: 
  Country: None (occurrence: None)
  Receive Date: 20080430
  Receipt Date: 20080416
  Transmission Date: 20081010
  Serious: Yes (Other)
  Sender: FDA-Public Use
  Company Number: US-ELI_LILLY_AND_COMPANY-US200804004396

PATIENT
  Sex: Male

DRUGS (1)
  1. XIGRIS [Suspect]
     Dates: start: 19980901

REACTIONS (2)
  - GANGRENE [None]
  - SKIN DISCOLOURATION [None]
